FAERS Safety Report 7758530-0 (Version None)
Quarter: 2011Q3

REPORT INFORMATION
  Report Type: 
  Country: None (occurrence: None)
  Receive Date: 20110919
  Receipt Date: 20110913
  Transmission Date: 20111222
  Serious: Yes (Hospitalization)
  Sender: FDA-Public Use
  Company Number: GB-B.I. PHARMACEUTICALS,INC./RIDGEFIELD-2011-DE-04717DE

PATIENT
  Sex: Female
  Weight: 82 kg

DRUGS (8)
  1. DABIGATRAN [Suspect]
     Indication: CEREBROVASCULAR ACCIDENT PROPHYLAXIS
     Dosage: DOSE BLINDED
     Route: 048
     Dates: start: 20090126, end: 20110817
  2. DOXAZOSIN MESYLATE [Concomitant]
     Dosage: BD
     Route: 048
  3. BISOPROLOL FUMARATE [Concomitant]
     Dosage: OD
     Route: 048
  4. BUMETANIDE [Concomitant]
     Dosage: BD
     Route: 048
  5. OMEPRAZOLE [Concomitant]
     Dosage: OD
     Route: 048
  6. ADCAL [Concomitant]
     Dosage: STRENGTH:1TAB; DAILY DOSE:BD
     Route: 048
  7. PERINDOPRIL ERBUMINE [Concomitant]
     Dosage: OD
     Route: 048
  8. DABIGATRAN [Suspect]
     Indication: ATRIAL FIBRILLATION

REACTIONS (1)
  - NEPHROTIC SYNDROME [None]
